FAERS Safety Report 7962505-6 (Version None)
Quarter: 2011Q4

REPORT INFORMATION
  Report Type: 
  Country: None (occurrence: None)
  Receive Date: 20111207
  Receipt Date: 20111128
  Transmission Date: 20120403
  Serious: Yes (Other)
  Sender: FDA-Public Use
  Company Number: US-GLAXOSMITHKLINE-A0955260A

PATIENT
  Age: 42 Year
  Sex: Female

DRUGS (3)
  1. FONDAPARINUX SODIUM [Suspect]
     Indication: PULMONARY EMBOLISM
     Dosage: 10MG PER DAY
     Route: 058
     Dates: start: 20110901
  2. INSULIN [Concomitant]
  3. ARIXTRA [Suspect]
     Indication: PULMONARY EMBOLISM
     Dosage: 10MG SEE DOSAGE TEXT
     Route: 058
     Dates: start: 20110101, end: 20111115

REACTIONS (9)
  - INSOMNIA [None]
  - MUSCULAR WEAKNESS [None]
  - PYREXIA [None]
  - SWELLING [None]
  - FEELING ABNORMAL [None]
  - MELAENA [None]
  - MUSCLE SPASMS [None]
  - RESTLESS LEGS SYNDROME [None]
  - FATIGUE [None]
